FAERS Safety Report 13713163 (Version 4)
Quarter: 2017Q4

REPORT INFORMATION
  Report Type: Spontaneous
  Country: SE (occurrence: SE)
  Receive Date: 20170704
  Receipt Date: 20171122
  Transmission Date: 20180320
  Serious: Yes (Hospitalization, Other)
  Sender: FDA-Public Use
  Company Number: SE-ELI_LILLY_AND_COMPANY-SE201706009934

PATIENT
  Age: 37 Year
  Sex: Female

DRUGS (3)
  1. HIDROXIZIN [Concomitant]
     Active Substance: HYDROXYZINE HYDROCHLORIDE
     Indication: PRODUCT USED FOR UNKNOWN INDICATION
     Dosage: UNK, UNKNOWN
     Route: 065
  2. ZYPADHERA [Suspect]
     Active Substance: OLANZAPINE PAMOATE
     Indication: SCHIZOPHRENIA
     Dosage: 405 MG, 2/M
     Route: 030
  3. ZYPADHERA [Suspect]
     Active Substance: OLANZAPINE PAMOATE
     Indication: SCHIZOPHRENIA
     Dosage: 300 MG, 2/M
     Route: 030
     Dates: start: 201411

REACTIONS (22)
  - Activated partial thromboplastin time shortened [Unknown]
  - Vomiting [Recovered/Resolved]
  - Anxiety [Unknown]
  - Confusional state [Recovered/Resolved]
  - Restlessness [Recovered/Resolved]
  - Injection site haemorrhage [Unknown]
  - Agitation [Unknown]
  - Heart rate increased [Recovered/Resolved]
  - Cold sweat [Recovered/Resolved]
  - Nausea [Unknown]
  - Blood pressure decreased [Unknown]
  - Consciousness fluctuating [Recovered/Resolved]
  - Blood pH increased [Unknown]
  - Asthenia [Recovered/Resolved]
  - Post-injection delirium sedation syndrome [Recovered/Resolved]
  - Dizziness [Unknown]
  - Cold sweat [Unknown]
  - Post-injection delirium sedation syndrome [Unknown]
  - Haemoglobin increased [Unknown]
  - Overdose [Unknown]
  - Restless legs syndrome [Recovered/Resolved]
  - PCO2 decreased [Unknown]

NARRATIVE: CASE EVENT DATE: 20160616
